FAERS Safety Report 8140464 (Version 7)
Quarter: 2013Q4

REPORT INFORMATION
  Report Type: Spontaneous
  Country: US (occurrence: US)
  Receive Date: 20110727
  Receipt Date: 20131031
  Transmission Date: 20140711
  Serious: Yes (Hospitalization, Other)
  Sender: FDA-Public Use
  Company Number: US-009507513-2011SP033289

PATIENT
  Sex: Female

DRUGS (5)
  1. MK-0764A [Suspect]
     Indication: PRODUCT USED FOR UNKNOWN INDICATION
     Dosage: 40 MG, QOD
     Route: 048
     Dates: start: 20110708
  2. MK-0764A [Suspect]
     Indication: MEDICAL OBSERVATION
     Dosage: 40 MG, ONCE
     Route: 048
     Dates: start: 20110710
  3. PRILOSEC [Suspect]
     Indication: PRODUCT USED FOR UNKNOWN INDICATION
     Dosage: 1 DF, UNKNOWN
     Dates: start: 20110709
  4. CHOLECALCIFEROL [Concomitant]
  5. PRILOSEC [Concomitant]
     Indication: GASTROOESOPHAGEAL REFLUX DISEASE

REACTIONS (32)
  - Nonspecific reaction [Not Recovered/Not Resolved]
  - Hypersensitivity [Not Recovered/Not Resolved]
  - Lip swelling [Unknown]
  - Swelling face [Unknown]
  - Hypertension [Unknown]
  - Generalised oedema [Unknown]
  - Local swelling [Unknown]
  - Blood glucose increased [Unknown]
  - Hypoaesthesia [Unknown]
  - Vision blurred [Not Recovered/Not Resolved]
  - Eye disorder [Not Recovered/Not Resolved]
  - Arthralgia [Not Recovered/Not Resolved]
  - Myalgia [Not Recovered/Not Resolved]
  - Joint swelling [Not Recovered/Not Resolved]
  - Pain [Not Recovered/Not Resolved]
  - Discomfort [Not Recovered/Not Resolved]
  - Rash [Recovering/Resolving]
  - Pruritus [Unknown]
  - Urticaria [Recovering/Resolving]
  - Skin discolouration [Unknown]
  - Chills [Unknown]
  - Tremor [Not Recovered/Not Resolved]
  - Inflammation [Unknown]
  - Skin disorder [Not Recovered/Not Resolved]
  - Stomatitis [Not Recovered/Not Resolved]
  - Glossodynia [Not Recovered/Not Resolved]
  - Pollakiuria [Not Recovered/Not Resolved]
  - Thirst [Not Recovered/Not Resolved]
  - Hunger [Not Recovered/Not Resolved]
  - Metabolic disorder [Not Recovered/Not Resolved]
  - Sleep disorder [Not Recovered/Not Resolved]
  - Social problem [Not Recovered/Not Resolved]
